FAERS Safety Report 5342533-X (Version None)
Quarter: 2007Q2

REPORT INFORMATION
  Report Type: 
  Country: None (occurrence: None)
  Receive Date: 20070416
  Receipt Date: 20070305
  Transmission Date: 20071010
  Serious: No
  Sender: FDA-Public Use
  Company Number: 2007SP000752

PATIENT
  Age: 79 Year
  Sex: Female
  Weight: 90.7194 kg

DRUGS (6)
  1. LUNESTA [Suspect]
     Indication: PAIN
     Dosage: 3 MG; HS; ORAL
     Route: 048
     Dates: start: 20070302
  2. LUNESTA [Suspect]
     Indication: SLEEP DISORDER
     Dosage: 3 MG; HS; ORAL
     Route: 048
     Dates: start: 20070302
  3. COZAAR [Concomitant]
  4. AVANDIA [Concomitant]
  5. SIMVASATATIN [Concomitant]
  6. HYDROCHLOROTHIAIZDE [Concomitant]

REACTIONS (1)
  - INSOMNIA [None]
